FAERS Safety Report 9353588 (Version 1)
Quarter: 2013Q2

REPORT INFORMATION
  Report Type: Spontaneous
  Country: JP (occurrence: JP)
  Receive Date: 20130618
  Receipt Date: 20130618
  Transmission Date: 20140414
  Serious: Yes (Hospitalization)
  Sender: FDA-Public Use
  Company Number: JP-SANOFI-AVENTIS-2013SA057388

PATIENT
  Sex: Female

DRUGS (2)
  1. ONETAXOTERE [Suspect]
     Indication: BREAST CANCER
     Dosage: DOSE: 60 MG/ BODY
     Route: 042
     Dates: start: 20130524
  2. ENDOXAN [Concomitant]
     Route: 065

REACTIONS (2)
  - Disorientation [Not Recovered/Not Resolved]
  - Dyspnoea [Not Recovered/Not Resolved]
